FAERS Safety Report 4507627-7 (Version None)
Quarter: 2004Q4

REPORT INFORMATION
  Report Type: 
  Country: None (occurrence: None)
  Receive Date: 20041123
  Receipt Date: 20040823
  Transmission Date: 20050328
  Serious: Yes (Hospitalization)
  Sender: FDA-Public Use
  Company Number: FR-BRISTOL-MYERS SQUIBB COMPANY-12685012

PATIENT
  Age: 64 Year
  Sex: Male

DRUGS (5)
  1. GLUCOPHAGE [Suspect]
     Indication: DIABETES MELLITUS NON-INSULIN-DEPENDENT
     Route: 048
     Dates: start: 19851201, end: 19910401
  2. CREON [Suspect]
     Dosage: STOPPED APR-1991 AND RESTARTED JUL-1992
     Route: 048
  3. BEFIZAL [Suspect]
     Route: 048
     Dates: start: 19890601, end: 19910401
  4. ALPRESS [Suspect]
     Indication: HYPERTENSION
     Route: 048
     Dates: end: 19910401
  5. NIDREL [Suspect]
     Indication: HYPERTENSION
     Route: 048
     Dates: start: 19881101, end: 19910401

REACTIONS (1)
  - INTERSTITIAL LUNG DISEASE [None]
